FAERS Safety Report 5215919-1 (Version None)
Quarter: 2007Q1

REPORT INFORMATION
  Report Type: 
  Country: None (occurrence: None)
  Receive Date: 20070123
  Receipt Date: 20070111
  Transmission Date: 20070707
  Serious: Yes (Death, Hospitalization)
  Sender: FDA-Public Use
  Company Number: SEWYE152115JAN07

PATIENT
  Sex: Male

DRUGS (5)
  1. ENBREL [Suspect]
     Indication: RHEUMATOID ARTHRITIS
     Route: 058
     Dates: start: 20000101, end: 20061001
  2. FOLIC ACID [Concomitant]
     Route: 048
  3. MOBIC [Concomitant]
     Dosage: 7.5 MG 1 TIME PER 1 DAY WHEN NEEDED
     Route: 048
  4. METHOTREXATE [Concomitant]
     Route: 048
     Dates: end: 20050501
  5. METHOTREXATE [Concomitant]
     Route: 048
     Dates: start: 20050501, end: 20060901

REACTIONS (4)
  - ADENOCARCINOMA [None]
  - METASTASES TO LIVER [None]
  - MULTI-ORGAN FAILURE [None]
  - SEPSIS [None]
